FAERS Safety Report 13082384 (Version 5)
Quarter: 2018Q2

REPORT INFORMATION
  Report Type: Spontaneous
  Country: US (occurrence: US)
  Receive Date: 20170103
  Receipt Date: 20180425
  Transmission Date: 20180711
  Serious: Yes (Other)
  Sender: FDA-Public Use
  Company Number: US-PFIZER INC-2016598950

PATIENT
  Age: 77 Year
  Sex: Female
  Weight: 74.83 kg

DRUGS (6)
  1. IBRANCE [Suspect]
     Active Substance: PALBOCICLIB
     Dosage: 125 MG, CYCLIC (DAYS 1-21 Q28 DAYS)
     Route: 048
  2. LETROZOLE. [Concomitant]
     Active Substance: LETROZOLE
     Dosage: UNK
  3. IBRANCE [Suspect]
     Active Substance: PALBOCICLIB
     Dosage: 125 MG, CYCLIC (D 1-21 Q28 DAYS)
     Route: 048
  4. IBRANCE [Suspect]
     Active Substance: PALBOCICLIB
     Dosage: 125 MG, CYCLIC  [DAYS 1-21 Q28 DAYS]
     Route: 048
     Dates: start: 20161209
  5. IBRANCE [Suspect]
     Active Substance: PALBOCICLIB
     Indication: BREAST CANCER METASTATIC
     Dosage: 125 MG, CYCLIC (D 1-21 Q28 DAYS)
     Route: 048
     Dates: start: 20161209
  6. IBRANCE [Suspect]
     Active Substance: PALBOCICLIB
     Dosage: 125 MG, CYCLIC (D 1-21 Q28 DAYS)
     Route: 048

REACTIONS (7)
  - Asthenia [Unknown]
  - Flatulence [Unknown]
  - Dyspnoea [Unknown]
  - Influenza [Unknown]
  - Malignant pleural effusion [Unknown]
  - Sinus disorder [Unknown]
  - Product use issue [Unknown]
